FAERS Safety Report 6578595-1 (Version None)
Quarter: 2010Q1

REPORT INFORMATION
  Report Type: 
  Country: None (occurrence: None)
  Receive Date: 20100211
  Receipt Date: 20100129
  Transmission Date: 20100710
  Serious: Yes (Hospitalization)
  Sender: FDA-Public Use
  Company Number: US-CELGENEUS-163-21880-10020073

PATIENT
  Sex: Male

DRUGS (3)
  1. REVLIMID [Suspect]
     Indication: MULTIPLE MYELOMA
     Route: 048
     Dates: start: 20100105, end: 20100107
  2. REVLIMID [Suspect]
     Route: 048
     Dates: start: 20090201
  3. REVLIMID [Suspect]
     Route: 048
     Dates: start: 20090901

REACTIONS (3)
  - AMMONIA INCREASED [None]
  - ASCITES [None]
  - PULMONARY OEDEMA [None]
